FAERS Safety Report 14126745 (Version 1)
Quarter: 2017Q4

REPORT INFORMATION
  Report Type: Report from Study
  Country: NL (occurrence: NL)
  Receive Date: 20171025
  Receipt Date: 20171025
  Transmission Date: 20180321
  Serious: Yes (Death, Life-Threatening, Hospitalization)
  Sender: FDA-Public Use
  Company Number: NL-CELGENEUS-NLD-2016035480

PATIENT
  Sex: Female

DRUGS (3)
  1. REVLIMID [Suspect]
     Active Substance: LENALIDOMIDE
     Indication: ACUTE MYELOID LEUKAEMIA
     Route: 048
     Dates: start: 20160312
  2. CYTARABIN [Suspect]
     Active Substance: CYTARABINE
     Indication: ACUTE MYELOID LEUKAEMIA
     Dosage: 1600 MILLIGRAM
     Route: 065
     Dates: start: 20160312
  3. DAUNORUBICIN [Suspect]
     Active Substance: DAUNORUBICIN
     Indication: ACUTE MYELOID LEUKAEMIA
     Dosage: 200 MILLIGRAM
     Route: 065
     Dates: start: 20160312

REACTIONS (2)
  - Pulmonary sepsis [Fatal]
  - Haematemesis [Recovered/Resolved]

NARRATIVE: CASE EVENT DATE: 20160319
